FAERS Safety Report 14995431 (Version 2)
Quarter: 2018Q4

REPORT INFORMATION
  Report Type: Spontaneous
  Country: US (occurrence: US)
  Receive Date: 20180611
  Receipt Date: 20181205
  Transmission Date: 20190204
  Serious: Yes (Other)
  Sender: FDA-Public Use
  Company Number: US-SA-2018SA151913

PATIENT
  Age: 54 Year
  Sex: Female
  Weight: 77.11 kg

DRUGS (11)
  1. TAXOTERE [Suspect]
     Active Substance: DOCETAXEL
     Indication: BREAST CANCER FEMALE
     Dosage: 170 MG, Q3W
     Route: 042
     Dates: start: 20050929, end: 20050929
  2. NEOSAR [Concomitant]
     Active Substance: CYCLOPHOSPHAMIDE
  3. CYTOXAN [Concomitant]
     Active Substance: CYCLOPHOSPHAMIDE
     Dosage: UNK
     Dates: start: 20050831, end: 20050831
  4. ADRIAMYCIN [Concomitant]
     Active Substance: DOXORUBICIN HYDROCHLORIDE
     Dosage: UNK
     Dates: start: 20050629, end: 20050629
  5. ADRIAMYCIN [Concomitant]
     Active Substance: DOXORUBICIN HYDROCHLORIDE
     Dosage: UNK
     Dates: start: 20050831, end: 20050831
  6. DECADRON [DEXAMETHASONE ACETATE] [Concomitant]
  7. MOTRIN [Concomitant]
     Active Substance: IBUPROFEN
  8. METRONIDAZOLE. [Concomitant]
     Active Substance: METRONIDAZOLE
  9. TAXOTERE [Suspect]
     Active Substance: DOCETAXEL
     Dosage: 170 UNK, Q3W
     Route: 042
     Dates: start: 20051130, end: 20051130
  10. CIPROFLOXACIN. [Concomitant]
     Active Substance: CIPROFLOXACIN
  11. CYTOXAN [Concomitant]
     Active Substance: CYCLOPHOSPHAMIDE
     Dosage: UNK
     Dates: start: 20050629, end: 20050629

REACTIONS (1)
  - Alopecia [Recovering/Resolving]

NARRATIVE: CASE EVENT DATE: 20060501
